FAERS Safety Report 21380296 (Version 1)
Quarter: 2022Q3

REPORT INFORMATION
  Report Type: Spontaneous
  Country: DE (occurrence: DE)
  Receive Date: 20220927
  Receipt Date: 20220927
  Transmission Date: 20221026
  Serious: Yes (Hospitalization)
  Sender: FDA-Public Use
  Company Number: DE-ADRED-05793-01

PATIENT
  Age: 58 Year
  Sex: Female
  Weight: 90 kg

DRUGS (19)
  1. OXALIPLATIN [Suspect]
     Active Substance: OXALIPLATIN
     Indication: Product used for unknown indication
     Dosage: ROA-20045000
     Route: 042
  2. LEUCOVORIN [Suspect]
     Active Substance: LEUCOVORIN
     Indication: Product used for unknown indication
     Dosage: ROA-20045000
     Route: 042
  3. FLUOROURACIL [Suspect]
     Active Substance: FLUOROURACIL
     Indication: Product used for unknown indication
     Dosage: ROA-20045000
     Route: 042
  4. LACTULOSE [Concomitant]
     Active Substance: LACTULOSE
     Indication: Product used for unknown indication
     Dosage: 20 ML, 1-0-0-0?ROA-20053000
     Route: 048
  5. HYDROMORPHONE [Concomitant]
     Active Substance: HYDROMORPHONE
     Indication: Product used for unknown indication
     Dosage: 4 MG, 1-1-1-0?ROA-20053000
     Route: 048
  6. TORSEMIDE [Concomitant]
     Active Substance: TORSEMIDE
     Indication: Product used for unknown indication
     Dosage: 10 MG, 1-0-0-0?ROA-20053000
     Route: 048
  7. ONDANSETRON [Concomitant]
     Active Substance: ONDANSETRON
     Indication: Product used for unknown indication
     Dosage: 8 MG, 1-0-1-0?ROA-20053000
     Route: 048
  8. METOCLOPRAMIDE [Concomitant]
     Active Substance: METOCLOPRAMIDE
     Indication: Product used for unknown indication
     Dosage: 10 MG, 1-1-1-0?ROA-20053000
     Route: 048
  9. ETORICOXIB [Concomitant]
     Active Substance: ETORICOXIB
     Indication: Product used for unknown indication
     Dosage: 90 MG, 0-1-0-0?ROA-20053000
     Route: 048
  10. MIRTAZAPINE [Concomitant]
     Active Substance: MIRTAZAPINE
     Indication: Product used for unknown indication
     Dosage: 15 MG, 0-0-0.5-0?ROA-20053000
     Route: 048
  11. MORPHINE [Concomitant]
     Active Substance: MORPHINE
     Indication: Product used for unknown indication
     Dosage: 8 DROPS, 1-0-0-0?ROA-20053000
     Route: 048
  12. Macrogol beta plus electrolyte, powder for solution [Concomitant]
     Indication: Product used for unknown indication
     Dosage: 1-0-0-0?ROA-20053000
     Route: 048
  13. METAMIZOL [Concomitant]
     Active Substance: METAMIZOLE SODIUM
     Indication: Product used for unknown indication
     Dosage: 500 MG, 2-2-2-2?ROA-20053000
     Route: 048
  14. TINZAPARIN [Concomitant]
     Active Substance: TINZAPARIN
     Indication: Product used for unknown indication
     Dosage: 0.9 ML, 0-0-1-0?ROA-20066000
     Route: 058
  15. PANTOPRAZOLE SODIUM [Concomitant]
     Active Substance: PANTOPRAZOLE SODIUM
     Indication: Product used for unknown indication
     Dosage: 40 MG, 1-0-0-0?ROA-20053000
     Route: 048
  16. TORSEMIDE [Concomitant]
     Active Substance: TORSEMIDE
     Indication: Product used for unknown indication
     Dosage: 5 MG, 1-0-0-0?ROA-20053000
     Route: 048
  17. kalinor - retard p 600mg [Concomitant]
     Indication: Product used for unknown indication
     Dosage: 600 MG, 1-1-1-0?ROA-20053000
     Route: 048
  18. vomex a 150mg [Concomitant]
     Indication: Product used for unknown indication
     Dosage: 150 MG, 1-0-1-0?ROA-20053000
     Route: 048
  19. METOPROLOL [Concomitant]
     Active Substance: METOPROLOL
     Indication: Product used for unknown indication
     Dosage: 47.5 MG, 1-0-1-0?ROA-20053000
     Route: 048

REACTIONS (4)
  - General physical health deterioration [None]
  - Fatigue [None]
  - Dizziness [None]
  - Pancytopenia [None]
